FAERS Safety Report 6644152-1 (Version None)
Quarter: 2010Q1

REPORT INFORMATION
  Report Type: 
  Country: None (occurrence: None)
  Receive Date: 20100322
  Receipt Date: 20100317
  Transmission Date: 20100710
  Serious: Yes (Death, Other)
  Sender: FDA-Public Use
  Company Number: PHHY2010GB11409

PATIENT
  Sex: Female
  Weight: 76 kg

DRUGS (4)
  1. CLOZARIL [Suspect]
     Indication: SCHIZOPHRENIA
     Dosage: 500 MG DAILY
     Dates: start: 20040202
  2. AMISULPRIDE [Concomitant]
     Dosage: 400 MG, DAILY
     Route: 048
  3. PAROXETINE HCL [Concomitant]
     Indication: DEPRESSION
     Dosage: 20 MG, UNK
     Route: 048
  4. SIMVASTATIN [Concomitant]
     Indication: HYPERLIPIDAEMIA
     Dosage: 20 MG DAILY
     Route: 048

REACTIONS (2)
  - PNEUMONIA [None]
  - TYPE 2 DIABETES MELLITUS [None]
